FAERS Safety Report 20767326 (Version 1)
Quarter: 2022Q2

REPORT INFORMATION
  Report Type: Spontaneous
  Country: FR (occurrence: FR)
  Receive Date: 20220429
  Receipt Date: 20220429
  Transmission Date: 20220721
  Serious: Yes (Other)
  Sender: FDA-Public Use
  Company Number: None

PATIENT
  Age: 43 Year
  Sex: Male

DRUGS (7)
  1. ALPRAZOLAM [Suspect]
     Active Substance: ALPRAZOLAM
     Indication: Alcohol detoxification
     Dosage: 200 MG , THERAPY START DATE : ASKU , FREQUENCY TIME : 1 DAYS
     Route: 048
     Dates: end: 20220327
  2. FLUOXETINE [Suspect]
     Active Substance: FLUOXETINE HYDROCHLORIDE
     Indication: Mixed anxiety and depressive disorder
     Dosage: 20 MG ,THERAPY START DATE : ASKU , FREQUENCY TIME : 1 DAYS
     Route: 048
  3. OXAZEPAM [Suspect]
     Active Substance: OXAZEPAM
     Indication: Alcohol detoxification
     Dosage: IF NECESSARY, UNIT DOSE : 25 MG , THERAPY START DATE : ASKU , FREQUENCY TIME : 1 DAYS
     Route: 048
     Dates: end: 20220327
  4. ACUPAN [Suspect]
     Active Substance: NEFOPAM HYDROCHLORIDE
     Indication: Pain
     Dosage: UNIT DOSE : 100 MG , THERAPY START DATE : ASKU , FREQUENCY TIME : 24 HOURS
     Route: 042
     Dates: end: 20220328
  5. MORPHINE [Suspect]
     Active Substance: MORPHINE
     Indication: Pain
     Route: 042
     Dates: start: 20220322
  6. PIPERACILLIN SODIUM\TAZOBACTAM SODIUM [Suspect]
     Active Substance: PIPERACILLIN SODIUM\TAZOBACTAM SODIUM
     Indication: Fournier^s gangrene
     Dosage: 16 G , FREQUENCY TIME : 1 DAYS , DURATION : 5 DAYS
     Route: 042
     Dates: start: 20220322, end: 20220327
  7. PIPERACILLIN SODIUM\TAZOBACTAM SODIUM [Suspect]
     Active Substance: PIPERACILLIN SODIUM\TAZOBACTAM SODIUM
     Dosage: 24 G ,  FREQUENCY TIME : 1 DAYS , DURATION : 1 DAYS
     Route: 042
     Dates: start: 20220327, end: 20220328

REACTIONS (2)
  - Psychomotor hyperactivity [Not Recovered/Not Resolved]
  - Hallucination [Not Recovered/Not Resolved]

NARRATIVE: CASE EVENT DATE: 20220327
